FAERS Safety Report 12419897 (Version 3)
Quarter: 2016Q2

REPORT INFORMATION
  Report Type: Report from Study
  Country: GR (occurrence: GR)
  Receive Date: 20160531
  Receipt Date: 20160610
  Transmission Date: 20160815
  Serious: Yes (Hospitalization)
  Sender: FDA-Public Use
  Company Number: GR-AMGEN-GRCNI2016068114

PATIENT
  Age: 82 Year
  Sex: Female

DRUGS (11)
  1. METHYLPREDNISOLONE. [Concomitant]
     Active Substance: METHYLPREDNISOLONE
     Dosage: 16 MG, TID
     Route: 048
     Dates: start: 20160401
  2. ERIBULIN [Concomitant]
     Active Substance: ERIBULIN
     Dosage: 1.9 MG, Q3WK
     Route: 042
     Dates: start: 20160120
  3. OMEPRAZOLE. [Concomitant]
     Active Substance: OMEPRAZOLE
     Dosage: 20 MG, UNK
     Route: 048
     Dates: start: 20160401
  4. FENTANYL. [Concomitant]
     Active Substance: FENTANYL
     Dosage: 25 MG, EVERY 72HRS
     Route: 062
     Dates: start: 20160120
  5. OXYGEN. [Concomitant]
     Active Substance: OXYGEN
     Dosage: UNK
     Route: 045
     Dates: start: 20160530
  6. METOPROLOL. [Concomitant]
     Active Substance: METOPROLOL
     Dosage: 100 MG, BID
     Route: 048
     Dates: start: 20160526, end: 20160526
  7. DEXAMETHASONE. [Concomitant]
     Active Substance: DEXAMETHASONE
     Dosage: 40 MG, QD
     Route: 042
     Dates: start: 20160528
  8. AMLODIPINE AND VALSARTAN [Concomitant]
     Active Substance: AMLODIPINE\VALSARTAN
     Dosage: (10+60) MG, QD
     Route: 048
     Dates: start: 20160601, end: 20160601
  9. CALCIORAL D3 [Concomitant]
     Dosage: UNK, (500 MG+400 IU)
     Route: 048
     Dates: start: 20150401
  10. DENOSUMAB [Suspect]
     Active Substance: DENOSUMAB
     Indication: PROPHYLAXIS
     Route: 065
  11. NORMAL SALINE [Concomitant]
     Active Substance: SODIUM CHLORIDE
     Dosage: 0.9 %, EVERY 24H
     Route: 042
     Dates: start: 20160526

REACTIONS (1)
  - Pyrexia [Recovering/Resolving]

NARRATIVE: CASE EVENT DATE: 20160526
